FAERS Safety Report 18356071 (Version 6)
Quarter: 2021Q3

REPORT INFORMATION
  Report Type: Spontaneous
  Country: IL (occurrence: IL)
  Receive Date: 20201007
  Receipt Date: 20210906
  Transmission Date: 20211014
  Serious: Yes (Other)
  Sender: FDA-Public Use
  Company Number: IL-PFIZER INC-2018123953

PATIENT
  Age: 50 Year
  Sex: Male

DRUGS (4)
  1. ELELYSO [Suspect]
     Active Substance: TALIGLUCERASE ALFA
     Dosage: UNK
     Dates: end: 20190328
  2. ELELYSO [Suspect]
     Active Substance: TALIGLUCERASE ALFA
     Dosage: 2400 UNITS PER INFUSION, TWICE A MONTH, DURATION OF TREATMENT :AN HOUR AN A HALF
     Route: 042
  3. ELELYSO [Suspect]
     Active Substance: TALIGLUCERASE ALFA
     Dosage: 2400 UNITS PER INFUSION (ONE WEEK YES, ONE WEEK NO)
     Route: 042
  4. ELELYSO [Suspect]
     Active Substance: TALIGLUCERASE ALFA
     Indication: GAUCHER^S DISEASE
     Dosage: 2400 UNITS PER INFUSION FOR ABOUT 1 HOUR AND A HALF, TWICE A WEEK
     Route: 042

REACTIONS (11)
  - Inappropriate schedule of product administration [Recovered/Resolved]
  - Pain in extremity [Unknown]
  - Bone pain [Unknown]
  - Product dose omission issue [Unknown]
  - Fatigue [Unknown]
  - Polyp [Unknown]
  - Off label use [Unknown]
  - Blood pressure decreased [Unknown]
  - COVID-19 [Unknown]
  - Anger [Unknown]
  - Sleep disorder [Unknown]
